FAERS Safety Report 6490130-5 (Version None)
Quarter: 2009Q4

REPORT INFORMATION
  Report Type: 
  Country: None (occurrence: None)
  Receive Date: 20091211
  Receipt Date: 20090528
  Transmission Date: 20100525
  Serious: No
  Sender: FDA-Public Use
  Company Number: A0787118A

PATIENT
  Age: 34 Year
  Sex: Female

DRUGS (2)
  1. FLONASE [Suspect]
     Dosage: 1SPR PER DAY
     Route: 045
     Dates: start: 20090401, end: 20090501
  2. CLARITIN [Concomitant]

REACTIONS (1)
  - DRUG INEFFECTIVE [None]
